FAERS Safety Report 12949243 (Version 3)
Quarter: 2017Q1

REPORT INFORMATION
  Report Type: Spontaneous
  Country: US (occurrence: US)
  Receive Date: 20161116
  Receipt Date: 20170213
  Transmission Date: 20170428
  Serious: Yes (Other)
  Sender: FDA-Public Use
  Company Number: US-SHIRE-US201616957

PATIENT
  Age: 74 Year
  Sex: Male
  Weight: 81.63 kg

DRUGS (10)
  1. XIIDRA [Suspect]
     Active Substance: LIFITEGRAST
     Indication: DRY EYE
     Dosage: 1 GTT , 2X/DAY:BID (OD ONLY)
     Route: 047
     Dates: start: 20161103, end: 20161106
  2. VITAMIN A AND D [Concomitant]
     Active Substance: LANOLIN\PETROLATUM
     Indication: MACULAR DEGENERATION
     Dosage: 6600/1300 UNITS, 1X/DAY:QD
     Route: 048
     Dates: start: 2010
  3. OCUCEL [Concomitant]
     Indication: MACULAR DEGENERATION
     Dosage: 10 MG, 1X/DAY:QD
     Route: 048
     Dates: start: 2015
  4. ASTAXANTHIN [Concomitant]
     Indication: SUPPLEMENTATION THERAPY
     Dosage: 10 MG, 1X/DAY:QD
     Route: 048
     Dates: start: 2015
  5. GRAPESEED EXTRACT                  /08375801/ [Concomitant]
     Indication: SUPPLEMENTATION THERAPY
     Dosage: 100 MG (4 TABLETS), 1X/DAY:QD
     Route: 048
     Dates: start: 1996
  6. VITAMIN B COMPLEX [Concomitant]
     Active Substance: CYANOCOBALAMIN\DEXPANTHENOL\NIACINAMIDE\PYRIDOXINE HYDROCHLORIDE\RIBOFLAVIN 5^-PHOSPHATE SODIUM\THIAMINE HYDROCHLORIDE\VITAMIN B COMPLEX
     Indication: SUPPLEMENTATION THERAPY
     Dosage: 2 TABLETS, 1X/DAY:QD
     Route: 048
     Dates: start: 1996
  7. COENZYME Q10 [Concomitant]
     Active Substance: UBIDECARENONE
     Indication: SUPPLEMENTATION THERAPY
     Dosage: 225 MG (2 TABLETS), 1X/DAY:QD
     Route: 048
     Dates: start: 2011
  8. VITAMIN C [Concomitant]
     Active Substance: ASCORBIC ACID
     Indication: SUPPLEMENTATION THERAPY
     Dosage: 1000 MG, 3X/DAY:TID
     Route: 048
     Dates: start: 1976
  9. VITAMIN D                          /00107901/ [Concomitant]
     Active Substance: ERGOCALCIFEROL
     Indication: SUPPLEMENTATION THERAPY
     Dosage: 5000 UNITS, 1X/DAY:QD
     Route: 048
     Dates: start: 2006
  10. BENICAR [Concomitant]
     Active Substance: OLMESARTAN MEDOXOMIL
     Indication: PRODUCT USED FOR UNKNOWN INDICATION
     Dosage: UNK, UNKNOWN
     Route: 065

REACTIONS (3)
  - Macular oedema [Unknown]
  - Wrong technique in product usage process [Recovered/Resolved]
  - Vision blurred [Unknown]

NARRATIVE: CASE EVENT DATE: 201611
